FAERS Safety Report 20340281 (Version 1)
Quarter: 2022Q1

REPORT INFORMATION
  Report Type: Report from Study
  Country: US (occurrence: US)
  Receive Date: 20220117
  Receipt Date: 20220117
  Transmission Date: 20220424
  Serious: Yes (Death, Hospitalization)
  Sender: FDA-Public Use
  Company Number: US-BAXTER-2022BAX000672

PATIENT
  Sex: Female
  Weight: 46.1 kg

DRUGS (8)
  1. CYCLOPHOSPHAMIDE [Suspect]
     Active Substance: CYCLOPHOSPHAMIDE
     Indication: B precursor type acute leukaemia
     Dosage: TOTAL DOSE ADMINISTERED THIS COURSE 2740 MG
     Route: 065
     Dates: end: 20211102
  2. NOREPINEPHRINE BITARTRATE [Suspect]
     Active Substance: NOREPINEPHRINE BITARTRATE
     Indication: Product used for unknown indication
     Route: 065
  3. CYTARABINE [Suspect]
     Active Substance: CYTARABINE
     Indication: B precursor type acute leukaemia
     Dosage: TOTAL DOSE 1600 MG
     Route: 065
     Dates: end: 20211112
  4. INOTUZUMAB OZOGAMICIN [Suspect]
     Active Substance: INOTUZUMAB OZOGAMICIN
     Indication: B precursor type acute leukaemia
     Dosage: TOTAL DOSE 3.975 MG
     Route: 065
     Dates: end: 20210910
  5. METHOTREXATE SODIUM [Suspect]
     Active Substance: METHOTREXATE SODIUM
     Indication: B precursor type acute leukaemia
     Dosage: TOTAL DOSE ADMINISTERED 60 MG
     Route: 065
     Dates: end: 20211019
  6. VINCRISTINE SULFATE [Suspect]
     Active Substance: VINCRISTINE SULFATE
     Indication: B precursor type acute leukaemia
     Dosage: TOTAL DOSE ADMINISTERED THIS COURSE 8 MG
     Route: 065
     Dates: end: 20211124
  7. MERCAPTOPURINE [Suspect]
     Active Substance: MERCAPTOPURINE
     Indication: B precursor type acute leukaemia
     Dosage: TOTAL DOSE ADMINISTERED THIS COURSE 2400 MG
     Route: 065
     Dates: end: 20211011
  8. ONCASPAR [Suspect]
     Active Substance: PEGASPARGASE
     Indication: B precursor type acute leukaemia
     Dosage: TOTAL DOSE ADMINISTERED THIS COURSE 5525 IU
     Route: 065
     Dates: end: 20211117

REACTIONS (1)
  - Sepsis [Fatal]

NARRATIVE: CASE EVENT DATE: 20211127
